FAERS Safety Report 8318294-9 (Version None)
Quarter: 2012Q2

REPORT INFORMATION
  Report Type: 
  Country: None (occurrence: None)
  Receive Date: 20120427
  Receipt Date: 20120418
  Transmission Date: 20120825
  Serious: Yes (Hospitalization)
  Sender: FDA-Public Use
  Company Number: US-ELI_LILLY_AND_COMPANY-US201012001918

PATIENT
  Sex: Female

DRUGS (11)
  1. FORTEO [Suspect]
     Indication: OSTEOPOROSIS
     Dosage: 20 UG, QD
     Route: 058
     Dates: start: 20100901
  2. FORTEO [Suspect]
     Dosage: 20 UG, QD
     Route: 058
  3. ASPIRIN [Concomitant]
  4. TYLENOL (CAPLET) [Concomitant]
  5. FORTEO [Suspect]
     Dosage: 20 UG, QD
     Route: 058
  6. FORTEO [Suspect]
     Dosage: 20 UG, QD
     Route: 058
  7. FORTEO [Suspect]
     Dosage: 20 UG, QD
     Route: 058
  8. FORTEO [Suspect]
     Dosage: 20 UG, QD
     Route: 058
  9. FORTEO [Suspect]
     Dosage: 20 UG, QD
     Route: 058
  10. FORTEO [Suspect]
     Dosage: 20 UG, QD
     Route: 058
  11. FORTEO [Suspect]
     Dosage: 20 UG, QD
     Route: 058

REACTIONS (23)
  - SLEEP DISORDER [None]
  - INSOMNIA [None]
  - MEDICATION ERROR [None]
  - BACK PAIN [None]
  - GENERAL PHYSICAL HEALTH DETERIORATION [None]
  - ARTHRALGIA [None]
  - HEADACHE [None]
  - ARTHROPATHY [None]
  - OBSTRUCTION [None]
  - NASOPHARYNGITIS [None]
  - HEART RATE INCREASED [None]
  - FATIGUE [None]
  - ANXIETY [None]
  - HOSPITALISATION [None]
  - NERVOUSNESS [None]
  - DRUG DOSE OMISSION [None]
  - PALPITATIONS [None]
  - CONSTIPATION [None]
  - PAIN [None]
  - HYPOAESTHESIA [None]
  - ARTHRITIS [None]
  - GAIT DISTURBANCE [None]
  - BACK DISORDER [None]
